FAERS Safety Report 23842839 (Version 1)
Quarter: 2024Q2

REPORT INFORMATION
  Report Type: Spontaneous
  Country: CN (occurrence: CN)
  Receive Date: 20240510
  Receipt Date: 20240510
  Transmission Date: 20240716
  Serious: Yes (Hospitalization, Other)
  Sender: FDA-Public Use
  Company Number: CN-009507513-2405CHN001147

PATIENT
  Age: 67 Year
  Sex: Male

DRUGS (1)
  1. PEMBROLIZUMAB [Suspect]
     Active Substance: PEMBROLIZUMAB
     Indication: Lung adenocarcinoma
     Dosage: UNK

REACTIONS (4)
  - Immune-mediated myasthenia gravis [Recovering/Resolving]
  - Immune-mediated myocarditis [Unknown]
  - Immune-mediated hepatic disorder [Unknown]
  - Thyroid gland injury [Unknown]
